FAERS Safety Report 7780531-7 (Version None)
Quarter: 2011Q3

REPORT INFORMATION
  Report Type: 
  Country: None (occurrence: None)
  Receive Date: 20110927
  Receipt Date: 20110412
  Transmission Date: 20111222
  Serious: No
  Sender: FDA-Public Use
  Company Number: US-ASTRAZENECA-2011SE02489

PATIENT
  Age: 47 Year
  Sex: Female
  Weight: 51.7 kg

DRUGS (9)
  1. SEROQUEL [Suspect]
     Indication: BIPOLAR DISORDER
     Route: 048
     Dates: start: 20110101
  2. NEXIUM [Concomitant]
     Route: 048
  3. DILAUDID [Concomitant]
  4. PHENERGAN HCL [Concomitant]
  5. SYNTHROID [Concomitant]
  6. ALBUTEROL [Concomitant]
  7. SEROQUEL [Suspect]
     Route: 048
  8. LAMICTAL [Concomitant]
  9. XANAX [Concomitant]

REACTIONS (6)
  - MUSCLE TWITCHING [None]
  - VOMITING [None]
  - DRUG DOSE OMISSION [None]
  - PAIN [None]
  - INSOMNIA [None]
  - WITHDRAWAL SYNDROME [None]
